FAERS Safety Report 23634727 (Version 2)
Quarter: 2024Q3

REPORT INFORMATION
  Report Type: Spontaneous
  Country: US (occurrence: US)
  Receive Date: 20240315
  Receipt Date: 20240930
  Transmission Date: 20241017
  Serious: Yes (Other)
  Sender: NOVO NORDISK
  Company Number: US-NOVOPROD-1186552

PATIENT
  Age: 41 Year
  Sex: Male

DRUGS (2)
  1. TRESIBA [Suspect]
     Active Substance: INSULIN DEGLUDEC
     Indication: Type 2 diabetes mellitus
     Dosage: 48 UNITS
     Route: 058
  2. METFORMIN [Concomitant]
     Active Substance: METFORMIN HYDROCHLORIDE
     Indication: Type 2 diabetes mellitus
     Dosage: 1000 MG, BID( 1000 MG DAY AND NIGHT)
     Route: 048

REACTIONS (5)
  - Blindness [Not Recovered/Not Resolved]
  - Vasodilatation [Recovering/Resolving]
  - Depression [Unknown]
  - Blood glucose increased [Not Recovered/Not Resolved]
  - Diabetes mellitus inadequate control [Unknown]

NARRATIVE: CASE EVENT DATE: 20200101
